FAERS Safety Report 5047361-0 (Version None)
Quarter: 2006Q3

REPORT INFORMATION
  Report Type: 
  Country: None (occurrence: None)
  Receive Date: 20060711
  Receipt Date: 20060609
  Transmission Date: 20061208
  Serious: Yes (Death, Hospitalization, Other)
  Sender: FDA-Public Use
  Company Number: PHBS2006NO08688

PATIENT
  Age: 17 Year
  Sex: Male

DRUGS (1)
  1. METHYLPHENIDATE HCL [Suspect]
     Indication: ATTENTION DEFICIT/HYPERACTIVITY DISORDER
     Dosage: 15 MG, TID
     Route: 048

REACTIONS (34)
  - AKATHISIA [None]
  - ALANINE AMINOTRANSFERASE INCREASED [None]
  - ANXIETY [None]
  - APHASIA [None]
  - ASPARTATE AMINOTRANSFERASE INCREASED [None]
  - ATRIAL THROMBOSIS [None]
  - CARDIAC FAILURE [None]
  - CEREBRAL INFARCTION [None]
  - CONGESTIVE CARDIOMYOPATHY [None]
  - CYANOSIS CENTRAL [None]
  - DYSPNOEA [None]
  - EJECTION FRACTION DECREASED [None]
  - FIBRIN D DIMER INCREASED [None]
  - HEART RATE INCREASED [None]
  - HEMIPLEGIA [None]
  - HEPATIC CONGESTION [None]
  - HEPATIC NECROSIS [None]
  - HEPATOMEGALY [None]
  - INFLUENZA LIKE ILLNESS [None]
  - INTERNATIONAL NORMALISED RATIO INCREASED [None]
  - LEUKOCYTOSIS [None]
  - MITRAL VALVE INCOMPETENCE [None]
  - NEUTROPHIL COUNT INCREASED [None]
  - ORTHOPNOEA [None]
  - OXYGEN SATURATION DECREASED [None]
  - PALPITATIONS [None]
  - PNEUMONIA [None]
  - POOR PERIPHERAL CIRCULATION [None]
  - PULMONARY EMBOLISM [None]
  - PULMONARY INFARCTION [None]
  - PULSE ABSENT [None]
  - SINUS TACHYCARDIA [None]
  - SKIN DISCOLOURATION [None]
  - VENTRICULAR HYPOKINESIA [None]
